FAERS Safety Report 7290088-5 (Version None)
Quarter: 2011Q1

REPORT INFORMATION
  Report Type: 
  Country: None (occurrence: None)
  Receive Date: 20110214
  Receipt Date: 20110203
  Transmission Date: 20110831
  Serious: Yes (Hospitalization, Other)
  Sender: FDA-Public Use
  Company Number: SE-JNJFOC-20110201707

PATIENT
  Age: 88 Year
  Sex: Male

DRUGS (3)
  1. HALDOL [Suspect]
     Indication: CONFUSIONAL STATE
     Route: 048
  2. UNSPECIFED MEDICATIONS [Concomitant]
     Route: 065
  3. TROMBYL [Concomitant]
     Route: 065

REACTIONS (4)
  - HYPERSOMNIA [None]
  - DYSSTASIA [None]
  - FATIGUE [None]
  - POLLAKIURIA [None]
